FAERS Safety Report 9531957 (Version 1)
Quarter: 2013Q3

REPORT INFORMATION
  Report Type: Spontaneous
  Country: FR (occurrence: FR)
  Receive Date: 20130918
  Receipt Date: 20130918
  Transmission Date: 20140515
  Serious: Yes (Other)
  Sender: FDA-Public Use
  Company Number: FR-009507513-1309FRA006537

PATIENT
  Sex: Female

DRUGS (2)
  1. MK-8415 [Suspect]
     Dosage: UNK
     Route: 064
     Dates: end: 20130604
  2. ADALATE [Concomitant]
     Dosage: UNK
     Dates: start: 201307

REACTIONS (3)
  - Foetal growth restriction [Unknown]
  - Amniotic fluid volume decreased [Unknown]
  - Foetal exposure during pregnancy [Unknown]
